FAERS Safety Report 14328914 (Version 2)
Quarter: 2018Q1

REPORT INFORMATION
  Report Type: Spontaneous
  Country: US (occurrence: US)
  Receive Date: 20171227
  Receipt Date: 20180326
  Transmission Date: 20180509
  Serious: No
  Sender: FDA-Public Use
  Company Number: US-PFIZER INC-2017546952

PATIENT
  Age: 8 Year
  Sex: Male

DRUGS (2)
  1. GENOTROPIN [Suspect]
     Active Substance: SOMATROPIN
     Indication: GROWTH FAILURE
     Dosage: 1.2 MG, DAILY (1.2MG INJECTION AT NIGHT)
     Dates: start: 201610, end: 20171215
  2. FOCALIN EXTENDED RELEASE [Concomitant]
     Indication: ATTENTION DEFICIT/HYPERACTIVITY DISORDER
     Dosage: 5 MG, ONCE A DAY (5MG CAPSULE BY MOUTH ONCE A DAY)
     Route: 048

REACTIONS (4)
  - Pyrexia [Recovered/Resolved]
  - Gastroenteritis [Unknown]
  - Vomiting [Recovered/Resolved]
  - Diarrhoea [Recovered/Resolved]

NARRATIVE: CASE EVENT DATE: 20171215
